FAERS Safety Report 10013011 (Version 1)
Quarter: 2014Q1

REPORT INFORMATION
  Report Type: Spontaneous
  Country: US (occurrence: US)
  Receive Date: 20140314
  Receipt Date: 20140314
  Transmission Date: 20141002
  Serious: No
  Sender: FDA-Public Use
  Company Number: US-ASTRAZENECA-2013SE69077

PATIENT
  Sex: Female

DRUGS (2)
  1. ZOMIG [Suspect]
     Route: 048
  2. ARITIFICAL SWEETNERS [Suspect]
     Route: 065

REACTIONS (3)
  - Migraine [Unknown]
  - Adverse reaction [Unknown]
  - Intentional drug misuse [Unknown]
